FAERS Safety Report 19129985 (Version 1)
Quarter: 2021Q2

REPORT INFORMATION
  Report Type: Report from Study
  Country: DE (occurrence: DE)
  Receive Date: 20210414
  Receipt Date: 20210414
  Transmission Date: 20210717
  Serious: Yes (Other)
  Sender: FDA-Public Use
  Company Number: DE-AMGEN-DEUSL2020187876

PATIENT
  Age: 77 Year
  Sex: Female

DRUGS (1)
  1. AMGEVITA [Suspect]
     Active Substance: ADALIMUMAB
     Indication: RHEUMATOID ARTHRITIS
     Dosage: UNK UNK, Q2WK
     Route: 065
     Dates: end: 202102

REACTIONS (12)
  - Rheumatoid arthritis [Unknown]
  - Peripheral swelling [Unknown]
  - Feeling cold [Not Recovered/Not Resolved]
  - Asthenia [Unknown]
  - Therapy non-responder [Unknown]
  - Nausea [Unknown]
  - Pain in extremity [Unknown]
  - Blood creatinine increased [Unknown]
  - Tremor [Not Recovered/Not Resolved]
  - Weight decreased [Unknown]
  - Renal impairment [Unknown]
  - Abdominal pain upper [Unknown]

NARRATIVE: CASE EVENT DATE: 202101
